FAERS Safety Report 16941096 (Version 1)
Quarter: 2019Q4

REPORT INFORMATION
  Report Type: Spontaneous
  Country: GB (occurrence: GB)
  Receive Date: 20191021
  Receipt Date: 20191021
  Transmission Date: 20200122
  Serious: Yes (Other)
  Sender: FDA-Public Use
  Company Number: GB-MYLANLABS-2019M1098326

PATIENT
  Age: 72 Year
  Sex: Female
  Weight: 88 kg

DRUGS (3)
  1. STATIN                             /00036501/ [Concomitant]
     Active Substance: NYSTATIN
     Dosage: UNK
  2. RANITIDINE. [Suspect]
     Active Substance: RANITIDINE
     Indication: GASTROINTESTINAL DISORDER
     Dosage: 300 MILLIGRAM, QD
     Route: 048
  3. FLECAINIDE [Concomitant]
     Active Substance: FLECAINIDE
     Dosage: UNK UNK, PRN

REACTIONS (1)
  - Atrial fibrillation [Recovered/Resolved]
